FAERS Safety Report 9643828 (Version 1)
Quarter: 2013Q4

REPORT INFORMATION
  Report Type: Spontaneous
  Country: BE (occurrence: BE)
  Receive Date: 20131024
  Receipt Date: 20131024
  Transmission Date: 20140711
  Serious: Yes (Hospitalization)
  Sender: FDA-Public Use
  Company Number: BE-TEVA-438471ISR

PATIENT
  Age: 32 Year
  Sex: Female

DRUGS (1)
  1. IBUPROFEN [Suspect]
     Route: 065

REACTIONS (1)
  - Toxic epidermal necrolysis [Recovered/Resolved]
